FAERS Safety Report 16548940 (Version 1)
Quarter: 2019Q3

REPORT INFORMATION
  Report Type: Spontaneous
  Country: US (occurrence: US)
  Receive Date: 20190709
  Receipt Date: 20190709
  Transmission Date: 20191004
  Serious: Yes (Other)
  Sender: FDA-Public Use
  Company Number: US-009507513-1907USA004246

PATIENT
  Age: 61 Year
  Sex: Female

DRUGS (5)
  1. METFORMIN [Suspect]
     Active Substance: METFORMIN HYDROCHLORIDE
     Indication: DIABETES MELLITUS
     Dosage: UNK
     Dates: start: 2018
  2. CITROEN [Concomitant]
     Active Substance: CEFIXIME
  3. JANUMET [Suspect]
     Active Substance: METFORMIN HYDROCHLORIDE\SITAGLIPTIN PHOSPHATE
     Dosage: STRENGTH: 50/500 (UNITS NOT REPORTED)
     Route: 048
     Dates: start: 201810
  4. DILTIAZEM. [Concomitant]
     Active Substance: DILTIAZEM
  5. METHOTREXATE. [Concomitant]
     Active Substance: METHOTREXATE

REACTIONS (1)
  - Pancreatic carcinoma [Unknown]
